FAERS Safety Report 7699484-5 (Version None)
Quarter: 2011Q3

REPORT INFORMATION
  Report Type: 
  Country: None (occurrence: None)
  Receive Date: 20110820
  Receipt Date: 20110125
  Transmission Date: 20111222
  Serious: No
  Sender: FDA-Public Use
  Company Number: US-ALLERGAN-1101114US

PATIENT
  Sex: Female

DRUGS (2)
  1. LASIX [Concomitant]
     Indication: JOINT SWELLING
     Dosage: 20 MG, QD
     Route: 048
     Dates: end: 20110119
  2. SANCTURA XR [Suspect]
     Indication: URINARY INCONTINENCE
     Dosage: UNK
     Route: 048
     Dates: start: 20110118

REACTIONS (3)
  - CONSTIPATION [None]
  - RECTAL HAEMORRHAGE [None]
  - DRY MOUTH [None]
